FAERS Safety Report 18775728 (Version 1)
Quarter: 2021Q1

REPORT INFORMATION
  Report Type: Other
  Country: US (occurrence: US)
  Receive Date: 20210122
  Receipt Date: 20210122
  Transmission Date: 20210419
  Serious: Yes (Hospitalization, Other)
  Sender: FDA-Public Use
  Company Number: US-MLV PHARMA LLC-000013

PATIENT
  Age: 88 Year
  Sex: Male

DRUGS (1)
  1. NITROFURANTOIN. [Suspect]
     Active Substance: NITROFURANTOIN
     Indication: URINARY TRACT INFECTION
     Dosage: DAILY BASIS AS PROPHYLACTIC THERAPY FOR RECURRENT UTIS FOR OVER 10 YEARS
     Dates: end: 2008

REACTIONS (2)
  - Interstitial lung disease [Unknown]
  - Chronic respiratory failure [Unknown]
